FAERS Safety Report 20621215 (Version 1)
Quarter: 2022Q1

REPORT INFORMATION
  Report Type: Spontaneous
  Country: US (occurrence: None)
  Receive Date: 20220322
  Receipt Date: 20220322
  Transmission Date: 20220423
  Serious: Yes (Hospitalization)
  Sender: FDA-Public Use
  Company Number: None

PATIENT
  Age: 59 Year
  Sex: Female
  Weight: 77 kg

DRUGS (3)
  1. LENALIDOMIDE [Suspect]
     Active Substance: LENALIDOMIDE
     Dates: end: 20220131
  2. DARATUMUMAB\HYALURONIDASE-FIHJ [Suspect]
     Active Substance: DARATUMUMAB\HYALURONIDASE-FIHJ
     Dates: end: 20220125
  3. DEXAMETHASONE [Suspect]
     Active Substance: DEXAMETHASONE
     Dates: end: 20220125

REACTIONS (13)
  - Tremor [None]
  - Asthenia [None]
  - Hypotension [None]
  - Tachycardia [None]
  - Pallor [None]
  - Haemoglobin decreased [None]
  - Oedema peripheral [None]
  - Dehydration [None]
  - Hypovolaemia [None]
  - Electrolyte imbalance [None]
  - Urinary tract infection [None]
  - White blood cells urine positive [None]
  - Urine leukocyte esterase positive [None]

NARRATIVE: CASE EVENT DATE: 20220201
